FAERS Safety Report 12209180 (Version 1)
Quarter: 2016Q1

REPORT INFORMATION
  Report Type: Spontaneous
  Country: AU (occurrence: AU)
  Receive Date: 20160324
  Receipt Date: 20160324
  Transmission Date: 20160526
  Serious: Yes (Hospitalization)
  Sender: FDA-Public Use
  Company Number: AU-GE HEALTHCARE MEDICAL DIAGNOSTICS-OMPQ-PR-1603S-0372

PATIENT
  Age: 72 Year
  Sex: Female

DRUGS (5)
  1. OMNIPAQUE [Suspect]
     Active Substance: IOHEXOL
     Indication: COUGH
  2. OMNIPAQUE [Suspect]
     Active Substance: IOHEXOL
     Indication: DIAGNOSTIC PROCEDURE
  3. THYROXINE [Concomitant]
     Active Substance: LEVOTHYROXINE
  4. OMNIPAQUE [Suspect]
     Active Substance: IOHEXOL
     Indication: TOBACCO USER
     Route: 042
     Dates: start: 20160322, end: 20160322
  5. OMNIPAQUE [Suspect]
     Active Substance: IOHEXOL
     Indication: WEIGHT DECREASED

REACTIONS (5)
  - Speech disorder [Recovering/Resolving]
  - Pollakiuria [Recovering/Resolving]
  - Tremor [Recovering/Resolving]
  - Coordination abnormal [Recovering/Resolving]
  - Dry mouth [Recovering/Resolving]

NARRATIVE: CASE EVENT DATE: 20160322
